FAERS Safety Report 5345789-2 (Version None)
Quarter: 2007Q2

REPORT INFORMATION
  Report Type: 
  Country: None (occurrence: None)
  Receive Date: 20070605
  Receipt Date: 20070601
  Transmission Date: 20071010
  Serious: Yes (Life-Threatening)
  Sender: FDA-Public Use
  Company Number: FR-ASTRAZENECA-2007CG00850

PATIENT
  Age: 71 Year
  Sex: Female

DRUGS (10)
  1. TENORMIN [Suspect]
     Indication: ESSENTIAL HYPERTENSION
     Route: 048
     Dates: end: 20070416
  2. PREVISCAN [Interacting]
     Indication: HYPERTENSIVE CARDIOMYOPATHY
     Dosage: 0.5 DF EVERY THREE DAYS
     Route: 048
  3. PREVISCAN [Interacting]
     Dosage: 0.75 DF DAILY TWO DAYS OUT OF THREE
     Route: 048
     Dates: end: 20070416
  4. AUGMENTIN '125' [Interacting]
     Indication: ERYSIPELAS
     Route: 048
     Dates: start: 20070412, end: 20070416
  5. PRAVADUAL [Interacting]
     Indication: HYPERTENSIVE CARDIOMYOPATHY
     Route: 048
     Dates: end: 20070416
  6. NUREFLEX [Interacting]
     Indication: PAIN IN EXTREMITY
     Route: 048
  7. ATACAND [Concomitant]
     Route: 048
  8. DAFALGAN [Concomitant]
     Indication: ERYSIPELAS
     Route: 048
  9. DESLORATADINE [Concomitant]
  10. LAMALINE [Concomitant]

REACTIONS (2)
  - CEREBRAL HAEMATOMA [None]
  - DRUG INTERACTION [None]
